FAERS Safety Report 5615902-8 (Version None)
Quarter: 2008Q1

REPORT INFORMATION
  Report Type: 
  Country: None (occurrence: None)
  Receive Date: 20080201
  Receipt Date: 20080118
  Transmission Date: 20080703
  Serious: Yes (Other)
  Sender: FDA-Public Use
  Company Number: 2008S1001094

PATIENT
  Age: 65 Year
  Sex: Male

DRUGS (7)
  1. ALLOBENZ (ACIFUGAN) [Suspect]
     Indication: GOUT
     Dosage: DAILY;ORAL
     Route: 048
  2. CO-RENITEC (VASARETIC) [Suspect]
     Indication: HYPERTENSION
     Dosage: DAILY; ORAL
     Route: 048
  3. LANSOPRAZOLE [Suspect]
     Dosage: DAILY; ORAL
     Route: 048
  4. NEUROBION /00091901/ (NEUROGRISEVIT /00091901/) [Suspect]
     Dosage: TWICE A DAY
  5. AMLODIPINE [Suspect]
     Indication: HYPERTENSION
     Dosage: DAILY; ORAL
     Route: 048
  6. CLOPIDOGREL [Suspect]
     Indication: VASCULAR GRAFT
     Dosage: DAILY;ORAL
     Route: 048
  7. PENTOXIFYLLINE [Suspect]
     Indication: POOR PERIPHERAL CIRCULATION
     Dosage: TWICE A DAY; ORAL
     Route: 048

REACTIONS (1)
  - DERMATITIS [None]
